FAERS Safety Report 5599663-7 (Version None)
Quarter: 2008Q1

REPORT INFORMATION
  Report Type: 
  Country: None (occurrence: None)
  Receive Date: 20080123
  Receipt Date: 20080111
  Transmission Date: 20080703
  Serious: Yes (Life-Threatening, Hospitalization, Other)
  Sender: FDA-Public Use
  Company Number: FR-BRISTOL-MYERS SQUIBB COMPANY-14045546

PATIENT
  Age: 64 Year
  Sex: Male

DRUGS (7)
  1. GLUCOPHAGE [Suspect]
     Route: 048
     Dates: start: 20070701
  2. ASPIRINE UPSA CAPS 325 MG [Suspect]
     Route: 048
  3. NOVONORM [Suspect]
     Route: 048
     Dates: start: 20070701
  4. INDAPAMIDE [Suspect]
     Route: 048
     Dates: start: 20070701
  5. COVERSYL [Suspect]
     Route: 048
     Dates: start: 20070701
  6. ZOCOR [Suspect]
     Route: 048
  7. STILNOX [Suspect]
     Dosage: 5MG(10MG, 0.5 TABLET AT BEDTIME)
     Route: 048

REACTIONS (4)
  - CARDIO-RESPIRATORY ARREST [None]
  - LACTIC ACIDOSIS [None]
  - OVERDOSE [None]
  - SHOCK [None]
